FAERS Safety Report 19097928 (Version 5)
Quarter: 2021Q2

REPORT INFORMATION
  Report Type: Report from Study
  Country: CA (occurrence: CA)
  Receive Date: 20210406
  Receipt Date: 20210613
  Transmission Date: 20210717
  Serious: Yes (Other)
  Sender: FDA-Public Use
  Company Number: NVSC2021CA058186

PATIENT
  Age: 63 Year
  Sex: Female

DRUGS (4)
  1. FENOFIBRATE. [Suspect]
     Active Substance: FENOFIBRATE
     Indication: BLOOD TRIGLYCERIDES ABNORMAL
     Dosage: 145 MG, QD
     Route: 048
     Dates: start: 2003
  2. CLONAZEPAM. [Concomitant]
     Active Substance: CLONAZEPAM
     Indication: PRODUCT USED FOR UNKNOWN INDICATION
     Dosage: UNK
     Route: 065
     Dates: start: 20210319
  3. MONTELUKAST SODIUM. [Suspect]
     Active Substance: MONTELUKAST SODIUM
     Indication: CHRONIC SPONTANEOUS URTICARIA
     Dosage: 10 MG, QD
     Route: 048
     Dates: start: 20210223
  4. RANITIDINE HYDROCHLORIDE. [Suspect]
     Active Substance: RANITIDINE HYDROCHLORIDE
     Indication: CHRONIC SPONTANEOUS URTICARIA
     Dosage: 150 MG, BID
     Route: 048
     Dates: start: 20210223

REACTIONS (25)
  - Papule [Unknown]
  - Arthralgia [Unknown]
  - Lip swelling [Unknown]
  - Swelling face [Unknown]
  - Blood pressure increased [Unknown]
  - Suicidal ideation [Unknown]
  - Pain [Unknown]
  - Cyst [Unknown]
  - Dermatitis contact [Unknown]
  - Hypersensitivity [Unknown]
  - Contusion [Unknown]
  - Nodule [Unknown]
  - Urticaria [Unknown]
  - Depression [Unknown]
  - Dysphonia [Unknown]
  - Pruritus [Unknown]
  - Erythema [Unknown]
  - Pharyngeal swelling [Unknown]
  - Allergy to synthetic fabric [Unknown]
  - Rash [Unknown]
  - Joint swelling [Unknown]
  - General physical health deterioration [Unknown]
  - Stress [Unknown]
  - Off label use [Unknown]
  - Drug ineffective [Unknown]

NARRATIVE: CASE EVENT DATE: 202102
